FAERS Safety Report 23697688 (Version 3)
Quarter: 2024Q3

REPORT INFORMATION
  Report Type: Report from Study
  Country: US (occurrence: US)
  Receive Date: 20240402
  Receipt Date: 20240701
  Transmission Date: 20241017
  Serious: Yes (Hospitalization, Other)
  Sender: OTSUKA
  Company Number: US-OTSUKA-2024_005724

PATIENT
  Age: 86 Year
  Sex: Male

DRUGS (10)
  1. CEDAZURIDINE\DECITABINE [Suspect]
     Active Substance: CEDAZURIDINE\DECITABINE
     Indication: Acute myeloid leukaemia
     Dosage: 1 DF (35 MG DECITABINE AND 100 MG CEDAZURIDINE), QD (ON DAYS 1 THROUGH 5) OF A 28-DAYS CYCLE
     Route: 048
     Dates: start: 20240229, end: 202403
  2. CEDAZURIDINE\DECITABINE [Suspect]
     Active Substance: CEDAZURIDINE\DECITABINE
     Dosage: 1 DF (35 MG DECITABINE AND 100 MG CEDAZURIDINE), QD (ON DAYS 1 THROUGH 5) OF A 28-DAYS CYCLE
     Route: 048
  3. CEDAZURIDINE\DECITABINE [Suspect]
     Active Substance: CEDAZURIDINE\DECITABINE
     Dosage: 1 DF (35 MG DECITABINE AND 100 MG CEDAZURIDINE), QD ON DAYS 1, 3, AND 5 OF EACH 28-DAY CYCLE
     Route: 065
     Dates: end: 20240415
  4. AZACITIDINE [Suspect]
     Active Substance: AZACITIDINE
     Indication: Product used for unknown indication
     Dosage: UNK
     Route: 065
  5. VENETOCLAX [Suspect]
     Active Substance: VENETOCLAX
     Indication: Product used for unknown indication
     Dosage: UNK
     Route: 065
  6. VENETOCLAX [Suspect]
     Active Substance: VENETOCLAX
     Dosage: (RESUMED AT A REDUCED DOSE)
     Route: 065
  7. ASPIRIN [Concomitant]
     Active Substance: ASPIRIN
     Indication: Product used for unknown indication
     Dosage: 81 MG
     Route: 065
  8. COLACE [Concomitant]
     Active Substance: DOCUSATE SODIUM
     Indication: Product used for unknown indication
     Dosage: 100 MG
     Route: 065
  9. DICYCLOMINE [Concomitant]
     Active Substance: DICYCLOMINE HYDROCHLORIDE
     Indication: Product used for unknown indication
     Dosage: 100 MG
     Route: 065
  10. VITAMINS [Concomitant]
     Active Substance: VITAMINS
     Indication: Product used for unknown indication
     Dosage: UNK
     Route: 065

REACTIONS (7)
  - Adverse event [Unknown]
  - Systemic infection [Recovered/Resolved]
  - Neutropenia [Recovered/Resolved]
  - Neutropenia [Unknown]
  - Anaemia [Unknown]
  - Product use in unapproved indication [Unknown]
  - Inappropriate schedule of product administration [Unknown]

NARRATIVE: CASE EVENT DATE: 20240229
